FAERS Safety Report 21860200 (Version 1)
Quarter: 2023Q1

REPORT INFORMATION
  Report Type: Spontaneous
  Country: US (occurrence: None)
  Receive Date: 20230113
  Receipt Date: 20230113
  Transmission Date: 20230418
  Serious: Yes (Other)
  Sender: FDA-Public Use
  Company Number: None

PATIENT
  Age: 68 Year
  Sex: Male

DRUGS (1)
  1. BENZONATATE [Suspect]
     Active Substance: BENZONATATE
     Dosage: FREQUENCY : TWICE A DAY;?
     Route: 048
     Dates: start: 20221022, end: 20221024

REACTIONS (5)
  - Pharyngeal swelling [None]
  - Oropharyngeal discomfort [None]
  - Anaphylactic reaction [None]
  - Upper airway obstruction [None]
  - Therapy cessation [None]

NARRATIVE: CASE EVENT DATE: 20221024
